FAERS Safety Report 8862747 (Version 1)
Quarter: 2012Q4

REPORT INFORMATION
  Report Type: 
  Country: US (occurrence: US)
  Receive Date: 20121026
  Receipt Date: 20121026
  Transmission Date: 20130627
  Serious: No
  Sender: FDA-Public Use
  Company Number: US-ALLERGAN-1212384US

PATIENT
  Age: 85 Year
  Sex: Female

DRUGS (4)
  1. ALPHAGAN P [Suspect]
     Indication: INTRAOCULAR PRESSURE INCREASED
     Dosage: 2 Gtt, bid
     Route: 047
  2. ALPHACON [Concomitant]
     Indication: DRUG USE FOR UNKNOWN INDICATION
  3. LATANAPROST [Concomitant]
     Indication: DRUG USE FOR UNKNOWN INDICATION
  4. BLOOD PRESSURE PILL [Concomitant]
     Indication: DRUG USE FOR UNKNOWN INDICATION

REACTIONS (7)
  - Eyelids pruritus [Not Recovered/Not Resolved]
  - Eye discharge [Recovered/Resolved]
  - Scleral hyperaemia [Not Recovered/Not Resolved]
  - Eye discharge [Recovered/Resolved]
  - Eyelid ptosis [Unknown]
  - Inappropriate schedule of drug administration [Unknown]
  - Eye pruritus [Not Recovered/Not Resolved]
